FAERS Safety Report 21424137 (Version 4)
Quarter: 2024Q1

REPORT INFORMATION
  Report Type: Report from Study
  Country: CO (occurrence: CO)
  Receive Date: 20221007
  Receipt Date: 20240110
  Transmission Date: 20240410
  Serious: Yes (Death, Hospitalization, Other)
  Sender: FDA-Public Use
  Company Number: CO-TAKEDA-2022TUS069541

PATIENT
  Age: 20 Year
  Sex: Male
  Weight: 40 kg

DRUGS (9)
  1. PONATINIB [Suspect]
     Active Substance: PONATINIB
     Indication: Acute lymphocytic leukaemia
     Dosage: 15 MILLIGRAM
     Route: 048
     Dates: start: 20210311
  2. PONATINIB [Suspect]
     Active Substance: PONATINIB
     Dosage: 15 MILLIGRAM, QOD
     Route: 048
     Dates: start: 20211103, end: 20231220
  3. MAGNESIUM [Concomitant]
     Active Substance: MAGNESIUM
     Dosage: 400 MILLIGRAM
     Route: 065
     Dates: start: 2021
  4. OMEPRAZOLE [Concomitant]
     Active Substance: OMEPRAZOLE
     Dosage: 20 MILLIGRAM
     Route: 065
     Dates: start: 2021, end: 20240105
  5. SERTRALINE [Concomitant]
     Active Substance: SERTRALINE HYDROCHLORIDE
     Dosage: 50 MILLIGRAM
     Route: 065
     Dates: start: 2021, end: 20240105
  6. TRIMETHOPRIM SULFATE [Concomitant]
     Active Substance: TRIMETHOPRIM SULFATE
     Dosage: UNK
     Route: 065
     Dates: start: 2021
  7. FOLIC ACID [Concomitant]
     Active Substance: FOLIC ACID
     Dosage: 40 MILLIGRAM
     Route: 065
     Dates: start: 2021
  8. ACYCLOVIR [Concomitant]
     Active Substance: ACYCLOVIR
     Dosage: 400 MILLIGRAM
     Route: 065
     Dates: start: 2021
  9. FRESUBIN [Concomitant]
     Active Substance: AMINO ACIDS\DEXTROSE\ELECTROLYTES NOS\SOYBEAN OIL\VITAMINS
     Dosage: 200 MILLIGRAM
     Route: 065
     Dates: start: 2021

REACTIONS (11)
  - Cardio-respiratory arrest [Fatal]
  - Abdominal distension [Unknown]
  - Hyperhidrosis [Unknown]
  - Neurological decompensation [Unknown]
  - Motor dysfunction [Unknown]
  - Hypophagia [Unknown]
  - Speech disorder [Unknown]
  - Eyelid ptosis [Unknown]
  - Mydriasis [Unknown]
  - Platelet count decreased [Unknown]
  - Abdominal pain [Unknown]

NARRATIVE: CASE EVENT DATE: 20220119
